FAERS Safety Report 20339165 (Version 2)
Quarter: 2022Q1

REPORT INFORMATION
  Report Type: Spontaneous
  Country: US (occurrence: None)
  Receive Date: 20220117
  Receipt Date: 20220322
  Transmission Date: 20220423
  Serious: No
  Sender: FDA-Public Use
  Company Number: 2022A018557

PATIENT
  Sex: Male
  Weight: 108 kg

DRUGS (1)
  1. BUDESONIDE\FORMOTEROL\GLYCOPYRRONIUM [Suspect]
     Active Substance: BUDESONIDE\FORMOTEROL\GLYCOPYRRONIUM
     Indication: Dyspnoea
     Dosage: 160 MCG- 9 MCG- 4.8 MCG 2 PUFFS TWICE A DAY
     Route: 055
     Dates: start: 2021

REACTIONS (3)
  - Emphysema [Not Recovered/Not Resolved]
  - Taste disorder [Unknown]
  - Device delivery system issue [Unknown]
